FAERS Safety Report 9104094 (Version 1)
Quarter: 2013Q1

REPORT INFORMATION
  Report Type: Spontaneous
  Country: GB (occurrence: GB)
  Receive Date: 20130219
  Receipt Date: 20130219
  Transmission Date: 20140127
  Serious: Yes (Life-Threatening, Hospitalization)
  Sender: FDA-Public Use
  Company Number: GB-SANOFI-AVENTIS-2013SA013366

PATIENT
  Age: 60 Year
  Sex: Female
  Weight: 80 kg

DRUGS (5)
  1. ENOXAPARIN SODIUM [Suspect]
     Indication: PULMONARY EMBOLISM
     Dosage: 0.5 MG/KG WITH A TOTAL DOSE OF 120 MG
     Route: 065
  2. HEPARIN [Suspect]
     Indication: PULMONARY EMBOLISM
     Dosage: 18 UNITS/KG PER HOUR WITH, WITH WEIGHT OF 80 KG;1.4ML PER HOUR OF 1000 UNITS IN 1ML CONCN
     Route: 065
  3. HEPARIN [Suspect]
     Indication: PULMONARY EMBOLISM
     Dosage: DOSE INCREASED TO 1.6 ML PER HOUR OF 1000 UNITS
     Route: 065
  4. OLANZAPINE [Concomitant]
     Indication: BIPOLAR DISORDER
  5. ANTIBIOTICS [Concomitant]
     Indication: UROSEPSIS

REACTIONS (13)
  - Subdural haemorrhage [Recovered/Resolved]
  - Unresponsive to stimuli [Recovered/Resolved]
  - Intra-abdominal haemorrhage [Recovering/Resolving]
  - Abdominal distension [Recovering/Resolving]
  - Tachycardia [Recovering/Resolving]
  - Hypotension [Unknown]
  - Haemoglobin decreased [Unknown]
  - Coma scale abnormal [Recovered/Resolved]
  - Speech disorder [Recovered/Resolved]
  - Hydrocephalus [None]
  - Activated partial thromboplastin time shortened [None]
  - Haematocrit decreased [None]
  - Respiratory disorder [None]
